FAERS Safety Report 8369976-4 (Version None)
Quarter: 2012Q2

REPORT INFORMATION
  Report Type: 
  Country: None (occurrence: None)
  Receive Date: 20120518
  Receipt Date: 20120515
  Transmission Date: 20120825
  Serious: Yes (Other)
  Sender: FDA-Public Use
  Company Number: US-INCYTE CORPORATION-2012IN000373

PATIENT
  Sex: Male
  Weight: 93.878 kg

DRUGS (8)
  1. LISINOPRIL [Concomitant]
     Dosage: 10 MG, QD
     Route: 048
  2. FUROSEMIDE [Concomitant]
     Dosage: 20 MG, QD
     Route: 048
  3. AMLODIPINE BESYLATE [Concomitant]
     Dosage: 2.5 MG, QD
     Route: 048
  4. TANDEM PLUS [Concomitant]
     Dosage: UNK
  5. JAKAFI [Suspect]
     Indication: MYELOFIBROSIS
     Dosage: 20 MG, BID
     Route: 048
     Dates: start: 20120131
  6. ANAGRELIDE HCL [Concomitant]
     Dosage: 0.5 MG, BID
     Route: 048
  7. ASPIRIN [Concomitant]
     Dosage: 81 MG, QD
     Route: 048
  8. FOLIC ACID [Concomitant]
     Dosage: UNK, QD
     Route: 048

REACTIONS (1)
  - EPISTAXIS [None]
